FAERS Safety Report 9218439 (Version 2)
Quarter: 2013Q2

REPORT INFORMATION
  Report Type: Spontaneous
  Country: US (occurrence: US)
  Receive Date: 20130409
  Receipt Date: 20130425
  Transmission Date: 20140414
  Serious: Yes (Hospitalization)
  Sender: FDA-Public Use
  Company Number: US-BIOGENIDEC-2013BI030448

PATIENT
  Age: 57 Year
  Sex: Female

DRUGS (18)
  1. TYSABRI [Suspect]
     Indication: MULTIPLE SCLEROSIS
     Route: 042
     Dates: start: 20080401, end: 20080819
  2. TYSABRI [Suspect]
     Indication: MULTIPLE SCLEROSIS
     Route: 042
     Dates: start: 20120118
  3. AVONEX [Concomitant]
     Indication: MULTIPLE SCLEROSIS
     Route: 030
     Dates: start: 20010622, end: 20070319
  4. AVONEX [Concomitant]
     Indication: MULTIPLE SCLEROSIS
     Route: 030
  5. AVONEX [Concomitant]
     Indication: MULTIPLE SCLEROSIS
     Route: 030
     Dates: start: 20070613
  6. PREVACID [Concomitant]
  7. EFFEXOR [Concomitant]
  8. COZAAR [Concomitant]
  9. DITROPAN [Concomitant]
  10. FENTANYL [Concomitant]
  11. FLONASE [Concomitant]
  12. GLIPIZIDE [Concomitant]
  13. LANTUS [Concomitant]
  14. HUMALOG [Concomitant]
  15. SYNTHROID [Concomitant]
  16. METFORMIN [Concomitant]
  17. PERCOCET [Concomitant]
  18. NEXIUM [Concomitant]

REACTIONS (1)
  - Urinary tract infection [Recovered/Resolved]
